FAERS Safety Report 7585829-3 (Version None)
Quarter: 2011Q3

REPORT INFORMATION
  Report Type: 
  Country: None (occurrence: None)
  Receive Date: 20110701
  Receipt Date: 20110623
  Transmission Date: 20111222
  Serious: Yes (Other)
  Sender: FDA-Public Use
  Company Number: JP-ALLERGAN-1108915US

PATIENT
  Age: 30 Year
  Sex: Male

DRUGS (2)
  1. BOTOX [Suspect]
     Indication: FACIAL SPASM
     Dosage: 30 UNITS, SINGLE
     Route: 030
     Dates: start: 20110616, end: 20110616
  2. BOTOX [Suspect]
     Dosage: 50 UNITS, SINGLE
     Route: 030

REACTIONS (2)
  - ABNORMAL SENSATION IN EYE [None]
  - VISUAL ACUITY REDUCED [None]
